FAERS Safety Report 16898322 (Version 1)
Quarter: 2019Q4

REPORT INFORMATION
  Report Type: Report from Study
  Country: CN (occurrence: CN)
  Receive Date: 20191009
  Receipt Date: 20191009
  Transmission Date: 20200122
  Serious: Yes (Other)
  Sender: FDA-Public Use
  Company Number: CN-ROCHE-2423580

PATIENT
  Sex: Female

DRUGS (3)
  1. PACLITAXEL. [Suspect]
     Active Substance: PACLITAXEL
     Indication: OVARIAN CANCER RECURRENT
     Dosage: EVERY 3 WEEKS WAS A COURSE OF TREATMENT
     Route: 041
  2. BEVACIZUMAB. [Suspect]
     Active Substance: BEVACIZUMAB
     Indication: OVARIAN CANCER RECURRENT
     Dosage: EVERY 3 WEEKS WAS A COURSE OF TREATMENT
     Route: 041
  3. CARBOPLATIN. [Suspect]
     Active Substance: CARBOPLATIN
     Indication: OVARIAN CANCER RECURRENT
     Dosage: EVERY 3 WEEKS WAS A COURSE OF TREATMENT
     Route: 041

REACTIONS (10)
  - Granulocyte count decreased [Unknown]
  - Bone marrow failure [Unknown]
  - Off label use [Unknown]
  - Nausea [Unknown]
  - Vomiting [Unknown]
  - Hypertension [Unknown]
  - Intentional product use issue [Unknown]
  - Renal impairment [Unknown]
  - Hepatic function abnormal [Unknown]
  - Neurotoxicity [Unknown]
